FAERS Safety Report 6425681-2 (Version None)
Quarter: 2009Q4

REPORT INFORMATION
  Report Type: 
  Country: None (occurrence: None)
  Receive Date: 20091103
  Receipt Date: 20091021
  Transmission Date: 20100525
  Serious: Yes (Other)
  Sender: FDA-Public Use
  Company Number: PHHY2009CA45820

PATIENT
  Sex: Male

DRUGS (5)
  1. ACLASTA [Suspect]
     Indication: OSTEOPOROSIS
     Dosage: ONCE A YEAR
     Route: 042
     Dates: start: 20091014
  2. CALCIUM [Concomitant]
     Dosage: 500 MG, BID
  3. VITAMIN B-12 [Concomitant]
  4. MAVIK [Concomitant]
     Dosage: 4 MG, QD
  5. VITAMIN D [Concomitant]
     Dosage: 1000 IU, QD

REACTIONS (3)
  - CORNEAL DISORDER [None]
  - OCULAR HYPERAEMIA [None]
  - PHOTOPHOBIA [None]
